FAERS Safety Report 9314780 (Version 2)
Quarter: 2013Q4

REPORT INFORMATION
  Report Type: Spontaneous
  Country: US (occurrence: US)
  Receive Date: 20130529
  Receipt Date: 20131001
  Transmission Date: 20140711
  Serious: Yes (Hospitalization)
  Sender: FDA-Public Use
  Company Number: US-BAYER-2013-065987

PATIENT
  Age: 31 Year
  Sex: Female
  Weight: 56.24 kg

DRUGS (29)
  1. YASMIN [Suspect]
     Indication: PREMENSTRUAL SYNDROME
     Dosage: UNK
     Dates: start: 200208, end: 200601
  2. OCELLA [Suspect]
     Indication: PREMENSTRUAL SYNDROME
     Dosage: UNK
     Dates: start: 20060727, end: 20121014
  3. ASACOL [Concomitant]
     Indication: CROHN^S DISEASE
     Dosage: UNK
     Dates: start: 2001
  4. PENTASA [Concomitant]
     Indication: CROHN^S DISEASE
     Dosage: UNK
     Dates: start: 200806, end: 201009
  5. ROWASA [Concomitant]
     Indication: CROHN^S DISEASE
     Dosage: UNK
     Dates: start: 2001
  6. MESALAMINE [Concomitant]
     Indication: CROHN^S DISEASE
     Dosage: UNK
     Dates: start: 2001
  7. HYDROCORTISONE [HYDROCORTISONE] [Concomitant]
     Indication: CROHN^S DISEASE
     Dosage: UNK
     Dates: start: 2001
  8. HYDROCORTISONE [HYDROCORTISONE] [Concomitant]
     Indication: HAEMORRHOIDS
  9. EFFEXOR [Concomitant]
     Indication: DEPRESSION
     Dosage: UNK
     Dates: start: 201205
  10. TRAZODONE [Concomitant]
     Indication: SLEEP DISORDER
     Dosage: UNK
     Dates: start: 201210
  11. TRAZODONE [Concomitant]
     Indication: SLEEP DISORDER
     Dosage: 50 MG, UNK
  12. HYDROCORTISONE/PRAMOXINE [Concomitant]
     Dosage: UNK
     Dates: start: 20120921
  13. HYDROCORTISONE/PRAMOXINE [Concomitant]
     Dosage: 2.5-1%
  14. VANCOMYCIN [Concomitant]
     Indication: CLOSTRIDIUM DIFFICILE INFECTION
     Dosage: UNK
     Dates: start: 201205
  15. FLAGYL [Concomitant]
     Indication: CROHN^S DISEASE
     Dosage: UNK
     Dates: start: 201210, end: 201303
  16. ASCORBIC ACID [Concomitant]
     Dosage: UNK
     Dates: start: 2003
  17. ALBUTEROL [Concomitant]
     Dosage: RARE USE
     Dates: start: 1996
  18. IBUPROFEN [IBUPROFEN] [Concomitant]
     Dosage: UNK
     Dates: start: 2006, end: 2012
  19. PREDNISONE [Concomitant]
     Indication: CROHN^S DISEASE
     Dosage: UNK
     Dates: start: 20120929, end: 201212
  20. PREDNISONE [Concomitant]
     Indication: CROHN^S DISEASE
     Dosage: 5 UNK, UNK
  21. WELLBUTRIN [Concomitant]
     Indication: DEPRESSION
     Dosage: UNK
     Dates: start: 20120928, end: 20121013
  22. CORTIFOAM [Concomitant]
  23. BUDESONIDE [Concomitant]
     Dosage: 3 MG, UNK
  24. VENLAFAXINE [Concomitant]
     Dosage: 75 MG, UNK
  25. BUPROPION [Concomitant]
     Dosage: 75 MG, UNK
  26. ANUCORT-HC [Concomitant]
  27. METRONIDAZOLE [Concomitant]
     Dosage: 500 MG, UNK
  28. PEG 3350 AND ELECTROLYTES [Concomitant]
     Dosage: UNK
  29. KEPPRA [Concomitant]
     Indication: CONVULSION

REACTIONS (21)
  - Transverse sinus thrombosis [Recovered/Resolved]
  - Pain [Recovered/Resolved]
  - Injury [Recovered/Resolved]
  - General physical health deterioration [Recovered/Resolved]
  - Jugular vein thrombosis [Recovered/Resolved]
  - Convulsion [None]
  - Haemorrhagic cerebral infarction [None]
  - Visual field defect [None]
  - Headache [None]
  - Dizziness [None]
  - Head discomfort [None]
  - Cognitive disorder [None]
  - Aphasia [None]
  - Memory impairment [None]
  - Disturbance in attention [None]
  - Emotional distress [None]
  - Anxiety [None]
  - Pain [None]
  - Depression [None]
  - Anhedonia [None]
  - Psychiatric symptom [None]
